FAERS Safety Report 9507861 (Version 1)
Quarter: 2013Q1

REPORT INFORMATION
  Report Type: Spontaneous
  Country: US (occurrence: None)
  Receive Date: 20130305
  Receipt Date: 20130305
  Transmission Date: 20140127
  Serious: Yes (Other)
  Sender: FDA-Public Use
  Company Number: 163-21880-12021650

PATIENT
  Age: 68 Year
  Sex: Male
  Weight: 90.2 kg

DRUGS (6)
  1. REVLIMID [Suspect]
     Indication: MANTLE CELL LYMPHOMA
     Dosage: 1 IN 1 D
     Route: 048
     Dates: start: 201102
  2. ALTEPLASE (ALTEPLASE) [Concomitant]
  3. LEVOFLOXACIN (LEVOFLOXACIN) [Concomitant]
  4. ALLOPURINOL [Concomitant]
  5. POTASSIUM (POTASSIUM) [Concomitant]
  6. LEVOTHYROXINE (LEVOTHYROXINE) [Concomitant]

REACTIONS (1)
  - Neutrophil count decreased [None]
